FAERS Safety Report 16342945 (Version 1)
Quarter: 2019Q2

REPORT INFORMATION
  Report Type: Spontaneous
  Country: FR (occurrence: FR)
  Receive Date: 20190522
  Receipt Date: 20190522
  Transmission Date: 20190711
  Serious: Yes (Other)
  Sender: FDA-Public Use
  Company Number: FR-BRISTOL-MYERS SQUIBB COMPANY-BMS-2019-047719

PATIENT
  Sex: Female

DRUGS (1)
  1. COUMADINE [Suspect]
     Active Substance: WARFARIN SODIUM
     Indication: ATRIAL FIBRILLATION
     Dosage: 2 TAB
     Route: 065

REACTIONS (5)
  - Fall [Unknown]
  - Cerebrovascular accident [Unknown]
  - Syncope [Unknown]
  - Subdural haematoma [Unknown]
  - International normalised ratio fluctuation [Unknown]
